FAERS Safety Report 6694030-7 (Version None)
Quarter: 2010Q2

REPORT INFORMATION
  Report Type: 
  Country: None (occurrence: None)
  Receive Date: 20100423
  Receipt Date: 20071203
  Transmission Date: 20101027
  Serious: Yes (Hospitalization)
  Sender: FDA-Public Use
  Company Number: PHHY2007US01421

PATIENT
  Sex: Female

DRUGS (1)
  1. GENTEAL (NVO) [Suspect]
     Dosage: UNK,UNK

REACTIONS (3)
  - EYELID IRRITATION [None]
  - EYELID OEDEMA [None]
  - VISION BLURRED [None]
